FAERS Safety Report 19029424 (Version 1)
Quarter: 2021Q1

REPORT INFORMATION
  Report Type: Spontaneous
  Country: AU (occurrence: AU)
  Receive Date: 20210319
  Receipt Date: 20210319
  Transmission Date: 20210420
  Serious: Yes (Hospitalization)
  Sender: FDA-Public Use
  Company Number: AU-SA-2021SA089184

PATIENT
  Age: 7 Day
  Sex: Female
  Weight: 2.98 kg

DRUGS (1)
  1. CEREZYME [Suspect]
     Active Substance: IMIGLUCERASE
     Route: 064
     Dates: end: 20210301

REACTIONS (3)
  - Jaundice [Unknown]
  - Foetal exposure during pregnancy [Unknown]
  - Weight decreased [Unknown]

NARRATIVE: CASE EVENT DATE: 202103
